FAERS Safety Report 24021027 (Version 1)
Quarter: 2024Q2

REPORT INFORMATION
  Report Type: Spontaneous
  Country: US (occurrence: US)
  Receive Date: 20240627
  Receipt Date: 20240627
  Transmission Date: 20240717
  Serious: No
  Sender: FDA-Public Use
  Company Number: US-SA-SAC20240619000108

PATIENT
  Sex: Male

DRUGS (5)
  1. DUPIXENT [Suspect]
     Active Substance: DUPILUMAB
     Indication: Dermatitis atopic
     Dosage: 300 MG, QOW
     Route: 058
     Dates: start: 20220204
  2. CLOBETASOL [Concomitant]
     Active Substance: CLOBETASOL
     Dosage: UNK
  3. ONDANSETRON [Concomitant]
     Active Substance: ONDANSETRON
     Dosage: UNK
  4. BETAMETHASONE DIPROPIONATE [Concomitant]
     Active Substance: BETAMETHASONE DIPROPIONATE
     Dosage: UNK
  5. BETAMETHASONE DIPROPIONATE [Concomitant]
     Active Substance: BETAMETHASONE DIPROPIONATE
     Dosage: UNK

REACTIONS (4)
  - Sleep disorder due to a general medical condition [Unknown]
  - Rash [Unknown]
  - Discomfort [Unknown]
  - Drug ineffective [Unknown]
